FAERS Safety Report 18948031 (Version 5)
Quarter: 2021Q2

REPORT INFORMATION
  Report Type: Report from Study
  Country: US (occurrence: US)
  Receive Date: 20210226
  Receipt Date: 20210528
  Transmission Date: 20210717
  Serious: Yes (Death, Life-Threatening, Hospitalization)
  Sender: FDA-Public Use
  Company Number: US-CELGENEUS-USA-20210206569

PATIENT
  Age: 66 Year
  Sex: Male
  Weight: 69 kg

DRUGS (61)
  1. JCAR017 [Suspect]
     Active Substance: LISOCABTAGENE MARALEUCEL
     Indication: FOLLICULAR LYMPHOMA
     Dosage: 100 X 10^6 CAR+ T CELLS X ONCE
     Route: 042
     Dates: start: 20210203, end: 20210203
  2. CYCLOPHOSPHAMIDE. [Suspect]
     Active Substance: CYCLOPHOSPHAMIDE
     Dosage: 530 MG X ONCE
     Route: 042
     Dates: start: 20210130, end: 20210130
  3. CYCLOPHOSPHAMIDE. [Suspect]
     Active Substance: CYCLOPHOSPHAMIDE
     Dosage: 530 MG X ONCE
     Route: 042
     Dates: start: 20210131, end: 20210131
  4. ACETAMINOPHEN. [Concomitant]
     Active Substance: ACETAMINOPHEN
     Indication: PRODUCT USED FOR UNKNOWN INDICATION
     Dosage: 650 MG X ONCE
     Route: 048
     Dates: start: 20210112, end: 20210112
  5. ACETAMINOPHEN. [Concomitant]
     Active Substance: ACETAMINOPHEN
     Dosage: 650 MG X ONCE
     Route: 048
     Dates: start: 20210113, end: 20210113
  6. APREPITANT. [Concomitant]
     Active Substance: APREPITANT
     Dosage: 80 MG X ONCE
     Route: 048
     Dates: start: 20210130, end: 20210130
  7. APREPITANT. [Concomitant]
     Active Substance: APREPITANT
     Dosage: 80 MG X ONCE
     Route: 048
     Dates: start: 20210131, end: 20210131
  8. DIPENHYDRAMINE [Concomitant]
     Indication: PRODUCT USED FOR UNKNOWN INDICATION
     Dosage: 25 MG X ONCE
     Route: 042
     Dates: start: 20210203, end: 20210203
  9. HYDROMORPHONE [Concomitant]
     Active Substance: HYDROMORPHONE
     Dosage: 1 MG X PRN
     Route: 042
     Dates: start: 20210303
  10. ONDANESTRON [Concomitant]
     Dosage: 16 MG X ONCE
     Route: 048
     Dates: start: 20210130, end: 20210130
  11. SODIUM CHLORIDE 0.9% [Concomitant]
     Active Substance: SODIUM CHLORIDE
     Indication: FLUID REPLACEMENT
     Dosage: 20 ML/H X CONTINUOUS
     Route: 042
     Dates: start: 20210112, end: 20210112
  12. SODIUM CHLORIDE 0.9% BOLUS [Concomitant]
     Dosage: 1000 ML X ONCE
     Route: 042
     Dates: start: 20210131, end: 20210131
  13. CYCLOPHOSPHAMIDE. [Suspect]
     Active Substance: CYCLOPHOSPHAMIDE
     Indication: FOLLICULAR LYMPHOMA
     Dosage: 530 MG X ONCE
     Route: 042
     Dates: start: 20210129, end: 20210129
  14. ACETAMINOPHEN. [Concomitant]
     Active Substance: ACETAMINOPHEN
     Dosage: 650 MG X PRN
     Route: 048
     Dates: start: 20210208
  15. FAMOTIDINE. [Concomitant]
     Active Substance: FAMOTIDINE
     Dosage: 40 MILLIGRAM
     Route: 048
     Dates: start: 20210221
  16. IOHEXOL [Concomitant]
     Active Substance: IOHEXOL
     Indication: SCAN WITH CONTRAST
     Dosage: 100 ML X ONCE
     Route: 042
     Dates: start: 20210125, end: 20210125
  17. SODIUM CHLORIDE 0.9% [Concomitant]
     Active Substance: SODIUM CHLORIDE
     Dosage: 75?150 ML/H X CONTINUOUS
     Route: 042
     Dates: start: 20210209, end: 20210209
  18. SODIUM CHLORIDE 0.9% BOLUS [Concomitant]
     Dosage: 500 ML X ONCE
     Route: 042
     Dates: start: 20210208, end: 20210208
  19. CHLORHEXIDINE GLUCONATE 0.12% [Concomitant]
     Active Substance: CHLORHEXIDINE GLUCONATE
     Indication: PROPHYLAXIS
     Dosage: 15 ML X 3 X 1 DAYS
     Route: 050
     Dates: start: 20210203
  20. DIPENHYDRAMINE [Concomitant]
     Dosage: 50 MILLIGRAM
     Route: 042
     Dates: start: 20210302
  21. FENTANYL. [Concomitant]
     Active Substance: FENTANYL
     Indication: SEDATION
     Dosage: 50 UG X ONCE
     Route: 042
     Dates: start: 20210201, end: 20210201
  22. LEVOFLOXACIN. [Concomitant]
     Active Substance: LEVOFLOXACIN
     Indication: PROPHYLAXIS
     Dosage: 500 MG X 1 X 1 DAYS
     Route: 048
     Dates: start: 20210108
  23. POSACONAZOLE [Concomitant]
     Active Substance: POSACONAZOLE
     Dosage: 300 MG X 1 X 1 DAYS
     Route: 048
     Dates: start: 20210208, end: 20210211
  24. SODIUM CHLORIDE 0.9% BOLUS [Concomitant]
     Dosage: 1000 ML X ONCE
     Route: 042
     Dates: start: 20210130, end: 20210130
  25. RITUXIMAB. [Concomitant]
     Active Substance: RITUXIMAB
     Indication: B-CELL LYMPHOMA
     Dosage: 700 MG
     Route: 065
     Dates: start: 20210112, end: 20210113
  26. BARIUM SUSPENSION 0.1% [Concomitant]
     Indication: SCAN WITH CONTRAST
     Dosage: 450 ML X ONCE
     Route: 048
     Dates: start: 20210125, end: 20210125
  27. FLUCONAZOLE. [Concomitant]
     Active Substance: FLUCONAZOLE
     Indication: PROPHYLAXIS
     Dosage: 200 MG X 1 X 1 DAYS
     Route: 048
     Dates: start: 20210204, end: 20210207
  28. HYDROMORPHONE [Concomitant]
     Active Substance: HYDROMORPHONE
     Indication: SUPPORTIVE CARE
     Dosage: 0.5 MG X ONCE
     Route: 042
     Dates: start: 20210303
  29. LEVETIRACETAM. [Concomitant]
     Active Substance: LEVETIRACETAM
     Indication: PROPHYLAXIS
     Dosage: 500 MG X 2 X 1 DAYS
     Route: 048
     Dates: start: 20210203
  30. MIDAZOLAM. [Concomitant]
     Active Substance: MIDAZOLAM
     Indication: SEDATION
     Dosage: 0.5 MG X ONCE
     Route: 042
     Dates: start: 20210201, end: 20210201
  31. ONDANESTRON [Concomitant]
     Dosage: 16 MG X ONCE
     Route: 048
     Dates: start: 20210129, end: 20210129
  32. ONDANESTRON [Concomitant]
     Dosage: 16 MG X ONCE
     Route: 048
     Dates: start: 20210131, end: 20210131
  33. POSACONAZOLE [Concomitant]
     Active Substance: POSACONAZOLE
     Indication: PROPHYLAXIS
     Dosage: 300 MG X 1 X 1 DAYS
     Route: 048
     Dates: start: 20210215
  34. FLUDARABINE [Suspect]
     Active Substance: FLUDARABINE PHOSPHATE
     Dosage: 53.5 MG X ONCE
     Route: 042
     Dates: start: 20210131, end: 20210131
  35. ACETAMINOPHEN. [Concomitant]
     Active Substance: ACETAMINOPHEN
     Dosage: 650 MG X 1 X 4 HOURS
     Route: 048
     Dates: start: 20210204, end: 20210208
  36. DAPTOMYCIN. [Concomitant]
     Active Substance: DAPTOMYCIN
     Indication: PROPHYLAXIS
     Dosage: 500 MG X ONCE
     Route: 042
     Dates: start: 20210209, end: 20210209
  37. ENTECAVIR. [Concomitant]
     Active Substance: ENTECAVIR
     Indication: PROPHYLAXIS
     Dosage: 0.5 MG X 1 X 1 DAYS
     Route: 048
     Dates: start: 20210204
  38. PANTOPRAZOLE [Concomitant]
     Active Substance: PANTOPRAZOLE
     Indication: GASTROOESOPHAGEAL REFLUX DISEASE
     Dosage: 40 MG X 1 X 1 DAYS
     Route: 048
     Dates: start: 20210204
  39. PROCHLORPERAZINE. [Concomitant]
     Active Substance: PROCHLORPERAZINE
     Indication: PROPHYLAXIS
     Dosage: 10 MG X PRN
     Route: 048
     Dates: start: 20210127
  40. SODIUM CHLORIDE 0.9% BOLUS [Concomitant]
     Indication: FLUID REPLACEMENT
     Dosage: 1000 ML X ONCE
     Route: 042
     Dates: start: 20210129, end: 20210129
  41. FLUDARABINE [Suspect]
     Active Substance: FLUDARABINE PHOSPHATE
     Dosage: 53.5 MG X ONCE
     Route: 042
     Dates: start: 20210130, end: 20210130
  42. BENDAMUSTINE [Concomitant]
     Active Substance: BENDAMUSTINE
     Indication: B-CELL LYMPHOMA
     Dosage: 165 MG
     Route: 065
     Dates: start: 20210112, end: 20210113
  43. ACETAMINOPHEN. [Concomitant]
     Active Substance: ACETAMINOPHEN
     Dosage: 650 MG X ONCE
     Route: 048
     Dates: start: 20210203, end: 20210203
  44. LIDOCAINE. [Concomitant]
     Active Substance: LIDOCAINE
     Indication: SEDATION
     Dosage: 20 ML X ONCE
     Route: 023
     Dates: start: 20210209, end: 20210209
  45. LIDOCAINE 2% [Concomitant]
     Active Substance: LIDOCAINE
     Indication: SEDATION
     Dosage: 10 ML X ONCE
     Route: 042
     Dates: start: 20210201, end: 20210201
  46. ONDANESTRON [Concomitant]
     Indication: PROPHYLAXIS
     Dosage: 16 MG X ONCE
     Route: 048
     Dates: start: 20210112, end: 20210112
  47. SODIUM CHLORIDE 0.9% [Concomitant]
     Active Substance: SODIUM CHLORIDE
     Dosage: 75 ML/H X CONTINUOUS
     Route: 042
     Dates: start: 20210204, end: 20210204
  48. VALACYCLOVIR [Concomitant]
     Active Substance: VALACYCLOVIR HYDROCHLORIDE
     Indication: PROPHYLAXIS
     Dosage: 500 MG X 1 X 1 DAYS
     Route: 048
     Dates: start: 20210204
  49. DIPENHYDRAMINE [Concomitant]
     Dosage: 25 MG X ONCE
     Route: 042
     Dates: start: 20210113, end: 20210113
  50. FLUOROEOXYGLUCOSE F?18 [Concomitant]
     Indication: SCAN WITH CONTRAST
     Dosage: 12.65 MCI X ONCE
     Route: 042
     Dates: start: 20210125, end: 20210125
  51. ONDANESTRON [Concomitant]
     Dosage: 8 MG X PRN
     Route: 048
     Dates: start: 20210119
  52. SODIUM CHLORIDE 0.9% [Concomitant]
     Active Substance: SODIUM CHLORIDE
     Dosage: 500 ML X CONTINUOUS
     Route: 042
     Dates: start: 20210201, end: 20210201
  53. FLUDARABINE [Suspect]
     Active Substance: FLUDARABINE PHOSPHATE
     Indication: FOLLICULAR LYMPHOMA
     Dosage: 53.5 MG X ONCE
     Route: 042
     Dates: start: 20210129, end: 20210129
  54. AMLODIPINE [Concomitant]
     Active Substance: AMLODIPINE BESYLATE
     Indication: HYPERTENSION
     Dosage: 5 MG X 1 X 1 DAYS
     Route: 048
     Dates: start: 2010
  55. OMEPRAZOLE. [Concomitant]
     Active Substance: OMEPRAZOLE
     Indication: GASTROOESOPHAGEAL REFLUX DISEASE
     Dosage: 40 MG X 1 X 1 DAYS
     Route: 048
     Dates: start: 2020
  56. ALLOPURINOL. [Concomitant]
     Active Substance: ALLOPURINOL
     Indication: PROPHYLAXIS
     Dosage: 300 MG X 1 X 1 DAYS
     Route: 048
     Dates: start: 20210108
  57. APREPITANT. [Concomitant]
     Active Substance: APREPITANT
     Indication: PROPHYLAXIS
     Dosage: 125 MG X ONCE
     Route: 048
     Dates: start: 20210129, end: 20210129
  58. ATOVAQUONE. [Concomitant]
     Active Substance: ATOVAQUONE
     Indication: PROPHYLAXIS
     Dosage: 1500 MG X 1 X 1 DAYS
     Route: 048
     Dates: start: 20210208
  59. FAMOTIDINE. [Concomitant]
     Active Substance: FAMOTIDINE
     Indication: GASTROOESOPHAGEAL REFLUX DISEASE
     Dosage: 40 MILLIGRAM
     Route: 048
     Dates: start: 20210203, end: 20210203
  60. SODIUM CHLORIDE 0.9% BOLUS [Concomitant]
     Dosage: 500 ML X ONCE
     Route: 042
     Dates: start: 20210207, end: 20210207
  61. SODIUM CHLORIDE 0.9% BOLUS [Concomitant]
     Dosage: 1000 ML X ONCE
     Route: 042
     Dates: start: 20210209, end: 20210209

REACTIONS (1)
  - Haemophagocytic lymphohistiocytosis [Fatal]

NARRATIVE: CASE EVENT DATE: 20210209
